FAERS Safety Report 11146304 (Version 1)
Quarter: 2015Q2

REPORT INFORMATION
  Report Type: Spontaneous
  Country: GB (occurrence: None)
  Receive Date: 20150526
  Receipt Date: 20150526
  Transmission Date: 20150821
  Serious: Yes (Other)
  Sender: FDA-Public Use
  Company Number: FK201502328

PATIENT
  Age: 64 Year
  Sex: Male
  Weight: 66.22 kg

DRUGS (6)
  1. LACTULOSE (MANUFACTURER UNKNOWN) (LACTULOSE) (LACTULOSE) [Suspect]
     Active Substance: LACTULOSE
     Indication: CONSTIPATION
     Route: 048
     Dates: start: 20150501, end: 20150502
  2. TAMSULOSIN [Concomitant]
     Active Substance: TAMSULOSIN
  3. LAXIDO (MEROKEN NEW) [Concomitant]
  4. SIMVASTATIN. [Concomitant]
     Active Substance: SIMVASTATIN
  5. AMITRIPTYLINE HYDROCHLORIDE. [Concomitant]
     Active Substance: AMITRIPTYLINE HYDROCHLORIDE
  6. FINASTERIDE. [Concomitant]
     Active Substance: FINASTERIDE

REACTIONS (8)
  - Feeling hot [None]
  - Dizziness [None]
  - Cold sweat [None]
  - Tinnitus [None]
  - Nausea [None]
  - Body temperature increased [None]
  - Headache [None]
  - Vision blurred [None]

NARRATIVE: CASE EVENT DATE: 20150503
